FAERS Safety Report 16388660 (Version 1)
Quarter: 2019Q2

REPORT INFORMATION
  Report Type: Spontaneous
  Country: GH (occurrence: GH)
  Receive Date: 20190604
  Receipt Date: 20190604
  Transmission Date: 20190711
  Serious: Yes (Hospitalization)
  Sender: FDA-Public Use
  Company Number: GH-009507513-1905GHA014303

PATIENT
  Age: 41 Year
  Sex: Male

DRUGS (2)
  1. ALBENDAZOLE. [Suspect]
     Active Substance: ALBENDAZOLE
     Indication: FILARIASIS
     Dosage: 1 TAB PER DAY
     Route: 048
     Dates: start: 20020414, end: 20020417
  2. MECTIZAN [Suspect]
     Active Substance: IVERMECTIN
     Indication: FILARIASIS
     Dosage: 4 TAB PER DAY
     Route: 048
     Dates: start: 20020414, end: 20020417

REACTIONS (2)
  - Stevens-Johnson syndrome [Recovered/Resolved]
  - Skin ulcer [Recovered/Resolved]

NARRATIVE: CASE EVENT DATE: 20020417
